FAERS Safety Report 9318536 (Version 1)
Quarter: 2013Q2

REPORT INFORMATION
  Report Type: Spontaneous
  Country: US (occurrence: US)
  Receive Date: 20130530
  Receipt Date: 20130530
  Transmission Date: 20140414
  Serious: No
  Sender: FDA-Public Use
  Company Number: US-GLAXOSMITHKLINE-A1017292A

PATIENT
  Age: 53 Year
  Sex: Female

DRUGS (4)
  1. VENTOLIN [Suspect]
     Indication: UPPER-AIRWAY COUGH SYNDROME
     Dosage: 1PUFF SIX TIMES PER DAY
     Route: 055
     Dates: start: 20130322
  2. TESSALON [Concomitant]
  3. ZYRTEC [Concomitant]
  4. VASOTEC [Concomitant]

REACTIONS (2)
  - Cough [Recovering/Resolving]
  - Insomnia [Unknown]
